FAERS Safety Report 8986366 (Version 1)
Quarter: 2012Q4

REPORT INFORMATION
  Report Type: Spontaneous
  Country: RS (occurrence: None)
  Receive Date: 20121205
  Receipt Date: 20121205
  Transmission Date: 20130627
  Serious: Yes (Other)
  Sender: FDA-Public Use
  Company Number: 2012P1066780

PATIENT
  Age: 28 Year
  Sex: Female

DRUGS (1)
  1. PROPYLTHIOURACIL [Suspect]
     Indication: HYPERTHYROIDISM
     Dosage: UNKNOWN  -  UNKNOWN

REACTIONS (5)
  - Leukocytoclastic vasculitis [None]
  - Cryoglobulinaemia [None]
  - Antineutrophil cytoplasmic antibody positive [None]
  - Cutaneous vasculitis [None]
  - Vasculitis necrotising [None]
